FAERS Safety Report 5996666-5 (Version None)
Quarter: 2008Q4

REPORT INFORMATION
  Report Type: 
  Country: None (occurrence: None)
  Receive Date: 20081210
  Receipt Date: 20081204
  Transmission Date: 20090506
  Serious: Yes (Other)
  Sender: FDA-Public Use
  Company Number: CHPA2008US21604

PATIENT
  Age: 9 Month
  Sex: Male
  Weight: 10 kg

DRUGS (1)
  1. TRIAMINIC COLD AND ALLERGY (NCH) (CHLORPHENAMINE MALEATE, PHENYLEPHRIN [Suspect]
     Indication: NASOPHARYNGITIS
     Dosage: A LITTLE DROP, BID, ORAL
     Route: 048
     Dates: start: 20081001

REACTIONS (3)
  - CONVULSION [None]
  - INCORRECT DOSE ADMINISTERED [None]
  - VIRAL INFECTION [None]
